FAERS Safety Report 6489682-0 (Version None)
Quarter: 2009Q4

REPORT INFORMATION
  Report Type: 
  Country: None (occurrence: None)
  Receive Date: 20091207
  Receipt Date: 20091125
  Transmission Date: 20100525
  Serious: Yes (Other)
  Sender: FDA-Public Use
  Company Number: 2009SP038361

PATIENT
  Age: 31 Year
  Sex: Male
  Weight: 76 kg

DRUGS (3)
  1. DISOPHROL RETARD (DEXBROMPHENIRAMINE MALEATE/ PSEUDOEPHEDRINE SULFATE) [Suspect]
     Indication: NASOPHARYNGITIS
     Dosage: 1 DF; BID; PO
     Route: 048
     Dates: start: 20091030, end: 20091031
  2. RUTINOSCORBIN [Concomitant]
  3. POLOPIRYNA S [Concomitant]

REACTIONS (3)
  - BALANCE DISORDER [None]
  - DIPLOPIA [None]
  - HEADACHE [None]
